FAERS Safety Report 15777447 (Version 4)
Quarter: 2019Q4

REPORT INFORMATION
  Report Type: Report from Study
  Country: US (occurrence: US)
  Receive Date: 20181231
  Receipt Date: 20191230
  Transmission Date: 20200122
  Serious: No
  Sender: FDA-Public Use
  Company Number: US-CLOVIS ONCOLOGY-CLO-2018-001755

PATIENT
  Sex: Female

DRUGS (1)
  1. RUBRACA [Suspect]
     Active Substance: RUCAPARIB CAMSYLATE
     Indication: OVARIAN CANCER
     Dosage: 600 MG, BID
     Route: 048
     Dates: start: 20181114

REACTIONS (11)
  - Sleep disorder [Not Recovered/Not Resolved]
  - Cough [Recovering/Resolving]
  - Product dose omission [Unknown]
  - Upper respiratory tract infection [Recovering/Resolving]
  - Tumour marker increased [Unknown]
  - Musculoskeletal pain [Unknown]
  - Neck pain [Unknown]
  - Nasal congestion [Recovering/Resolving]
  - Diarrhoea [Recovering/Resolving]
  - Fatigue [Recovering/Resolving]
  - Imaging procedure abnormal [Unknown]

NARRATIVE: CASE EVENT DATE: 2018
